FAERS Safety Report 18876791 (Version 1)
Quarter: 2021Q1

REPORT INFORMATION
  Report Type: Report from Study
  Country: US (occurrence: US)
  Receive Date: 20210210
  Receipt Date: 20210210
  Transmission Date: 20210420
  Serious: Yes (Hospitalization)
  Sender: FDA-Public Use
  Company Number: US-EXELIXIS-CABO-21036825

PATIENT
  Age: 74 Year
  Sex: Male

DRUGS (3)
  1. CABOMETYX [Suspect]
     Active Substance: CABOZANTINIB S-MALATE
     Dosage: 20 MG
     Route: 048
     Dates: start: 202101, end: 20210117
  2. CABOMETYX [Suspect]
     Active Substance: CABOZANTINIB S-MALATE
     Dosage: 20 MG, QD
     Route: 048
  3. CABOMETYX [Suspect]
     Active Substance: CABOZANTINIB S-MALATE
     Indication: RENAL CANCER
     Dosage: 20 MG, QD
     Route: 048
     Dates: start: 20210105, end: 202101

REACTIONS (8)
  - Pain [Unknown]
  - Asthenia [Unknown]
  - Hernia [Unknown]
  - Disorientation [Unknown]
  - Diarrhoea [Unknown]
  - Hypotension [Unknown]
  - Product dose omission issue [Unknown]
  - Stomatitis [Unknown]

NARRATIVE: CASE EVENT DATE: 202101
